FAERS Safety Report 7220938-X (Version None)
Quarter: 2011Q1

REPORT INFORMATION
  Report Type: 
  Country: None (occurrence: None)
  Receive Date: 20110112
  Receipt Date: 20110103
  Transmission Date: 20110831
  Serious: Yes (Hospitalization, Other)
  Sender: FDA-Public Use
  Company Number: US-ELI_LILLY_AND_COMPANY-US201009004548

PATIENT
  Sex: Female

DRUGS (15)
  1. VITAMIN B-12 [Concomitant]
  2. FORTEO [Suspect]
     Indication: OSTEOPOROSIS
     Dosage: 20 UG, DAILY (1/D)
     Route: 058
     Dates: start: 20100112, end: 20101025
  3. DELTALIN [Concomitant]
     Indication: OSTEOPOROSIS
  4. FERROUS SULFATE [Concomitant]
  5. MULTIVITAMIN [Concomitant]
     Dosage: UNK, DAILY (1/D)
  6. METOPROLOL [Concomitant]
  7. CIPRO [Concomitant]
  8. COUMADIN [Concomitant]
  9. ZYLOPRIM [Concomitant]
  10. FORTEO [Suspect]
     Dosage: 20 UG, DAILY (1/D)
     Route: 058
  11. CALCIUM [Concomitant]
  12. SYNTHROID [Concomitant]
  13. REMERON [Concomitant]
  14. THYROID [Concomitant]
  15. PRILOSEC [Concomitant]

REACTIONS (5)
  - ARTHRITIS [None]
  - GAIT DISTURBANCE [None]
  - ASTHENIA [None]
  - COLON CANCER [None]
  - THROMBOSIS [None]
